FAERS Safety Report 23056217 (Version 1)
Quarter: 2023Q4

REPORT INFORMATION
  Report Type: Spontaneous
  Country: None (occurrence: IT)
  Receive Date: 20231011
  Receipt Date: 20231011
  Transmission Date: 20240110
  Serious: Yes (Hospitalization, Other)
  Sender: FDA-Public Use
  Company Number: IT-B.Braun Medical Inc.-2146915

PATIENT
  Age: 88 Year
  Sex: Male
  Weight: 80 kg

DRUGS (1)
  1. LIDOCAINE HYDROCHLORIDE AND DEXTROSE [Suspect]
     Active Substance: LIDOCAINE HYDROCHLORIDE
     Route: 048

REACTIONS (6)
  - Product administration error [None]
  - Loss of consciousness [None]
  - Sopor [None]
  - Metabolic acidosis [None]
  - Syncope [None]
  - Seizure [None]
